FAERS Safety Report 19982537 (Version 4)
Quarter: 2021Q4

REPORT INFORMATION
  Report Type: Report from Study
  Country: DZ (occurrence: None)
  Receive Date: 20211022
  Receipt Date: 20211123
  Transmission Date: 20220303
  Serious: Yes (Hospitalization, Other)
  Sender: FDA-Public Use
  Company Number: DZ-MERCK HEALTHCARE KGAA-9270924

PATIENT
  Age: 23 Year
  Sex: Male

DRUGS (3)
  1. REBIF [Suspect]
     Active Substance: INTERFERON BETA-1A
     Indication: Multiple sclerosis
     Route: 058
     Dates: start: 20170313, end: 20210719
  2. REBIF [Suspect]
     Active Substance: INTERFERON BETA-1A
     Dosage: 50 PERCENTAGE OF DOSE
     Route: 058
     Dates: start: 20210802, end: 2021
  3. REBIF [Suspect]
     Active Substance: INTERFERON BETA-1A
     Route: 058
     Dates: start: 2021

REACTIONS (10)
  - Loss of consciousness [Recovered/Resolved]
  - Dizziness [Recovered/Resolved]
  - Contusion [Recovered/Resolved]
  - Fall [Recovered/Resolved]
  - Head injury [Recovered/Resolved]
  - Internal haemorrhage [Recovered/Resolved]
  - Haematoma [Recovered/Resolved]
  - Vomiting [Unknown]
  - Amnesia [Unknown]
  - Product administration interrupted [Unknown]

NARRATIVE: CASE EVENT DATE: 20210701
